FAERS Safety Report 6894203-4 (Version None)
Quarter: 2010Q3

REPORT INFORMATION
  Report Type: 
  Country: None (occurrence: None)
  Receive Date: 20100802
  Receipt Date: 20100720
  Transmission Date: 20110219
  Serious: Yes (Other)
  Sender: FDA-Public Use
  Company Number: PHHY2010CH47477

PATIENT
  Age: 17 Year
  Sex: Male

DRUGS (2)
  1. CYCLOSPORINE [Suspect]
     Indication: RENAL TRANSPLANT
  2. AZATHIOPRINE [Concomitant]

REACTIONS (9)
  - BLOOD CREATININE INCREASED [None]
  - BLOOD URIC ACID INCREASED [None]
  - BONE PAIN [None]
  - BONE SWELLING [None]
  - CHILLS [None]
  - GLOMERULAR FILTRATION RATE DECREASED [None]
  - GOUT [None]
  - PYREXIA [None]
  - SYNOVITIS [None]
